FAERS Safety Report 5269296-0 (Version None)
Quarter: 2007Q1

REPORT INFORMATION
  Report Type: 
  Country: None (occurrence: None)
  Receive Date: 20070319
  Receipt Date: 20070307
  Transmission Date: 20070707
  Serious: Yes (Other)
  Sender: FDA-Public Use
  Company Number: US-PFIZER INC-2007001537

PATIENT
  Sex: Female
  Weight: 85.3 kg

DRUGS (4)
  1. CHANTIX [Suspect]
     Indication: EX-SMOKER
     Dates: start: 20061201, end: 20070101
  2. CYMBALTA [Suspect]
     Indication: ANXIETY
  3. CYMBALTA [Suspect]
     Indication: DEPRESSION
  4. CYMBALTA [Suspect]
     Indication: MUSCULOSKELETAL PAIN

REACTIONS (2)
  - HOMICIDAL IDEATION [None]
  - MEMORY IMPAIRMENT [None]
